FAERS Safety Report 20538464 (Version 1)
Quarter: 2022Q1

REPORT INFORMATION
  Report Type: Report from Study
  Country: IT (occurrence: IT)
  Receive Date: 20220302
  Receipt Date: 20220302
  Transmission Date: 20220423
  Serious: Yes (Hospitalization)
  Sender: FDA-Public Use
  Company Number: IT-JNJFOC-20210907744

PATIENT
  Age: 45 Year
  Sex: Male
  Weight: 74 kg

DRUGS (3)
  1. DARATUMUMAB [Suspect]
     Active Substance: DARATUMUMAB
     Indication: Primary amyloidosis
     Route: 058
     Dates: start: 20210730, end: 20210806
  2. POMALIDOMIDE [Suspect]
     Active Substance: POMALIDOMIDE
     Indication: Primary amyloidosis
     Route: 048
     Dates: start: 20210730, end: 20210812
  3. DEXAMETHASONE [Suspect]
     Active Substance: DEXAMETHASONE
     Indication: Primary amyloidosis
     Route: 048
     Dates: start: 20210730, end: 20210807

REACTIONS (3)
  - Febrile neutropenia [Recovered/Resolved]
  - Tracheobronchitis [Recovered/Resolved]
  - Viral parotitis [Recovered/Resolved]

NARRATIVE: CASE EVENT DATE: 20210818
